FAERS Safety Report 5220734-9 (Version None)
Quarter: 2007Q1

REPORT INFORMATION
  Report Type: 
  Country: None (occurrence: None)
  Receive Date: 20070126
  Receipt Date: 20070116
  Transmission Date: 20070707
  Serious: Yes (Other)
  Sender: FDA-Public Use
  Company Number: TH-AVENTIS-200710461GDDC

PATIENT
  Age: 35 Year
  Sex: Female

DRUGS (3)
  1. DEXAMETHASONE TAB [Suspect]
     Dosage: DOSE: UNK
     Route: 048
  2. BRICANYL [Suspect]
  3. BRICANYL [Suspect]
     Dosage: DOSE UNIT: MICROGRAM PER MINUTE

REACTIONS (2)
  - ANEURYSM RUPTURED [None]
  - DRUG EXPOSURE DURING PREGNANCY [None]
